FAERS Safety Report 7867749 (Version 3)
Quarter: 2014Q4

REPORT INFORMATION
  Report Type: Spontaneous
  Country: US (occurrence: US)
  Receive Date: 20110323
  Receipt Date: 20141231
  Transmission Date: 20150529
  Serious: Yes (Other)
  Sender: FDA-Public Use
  Company Number: US-ROCHE-766792

PATIENT
  Age: 14 Year
  Sex: Female
  Weight: 56.7 kg

DRUGS (5)
  1. ACCUTANE [Suspect]
     Active Substance: ISOTRETINOIN
     Indication: ACNE
     Route: 065
     Dates: start: 200101, end: 200112
  2. ACCUTANE [Suspect]
     Active Substance: ISOTRETINOIN
     Route: 065
  3. TRI-CYCLEN [Concomitant]
     Indication: POLYCYSTIC OVARIES
  4. ACCUTANE [Suspect]
     Active Substance: ISOTRETINOIN
     Route: 065
  5. ACCUTANE [Suspect]
     Active Substance: ISOTRETINOIN
     Route: 065
     Dates: start: 20010406, end: 20010723

REACTIONS (10)
  - Colitis ulcerative [Unknown]
  - Injury [Unknown]
  - Eczema [Unknown]
  - Epistaxis [Unknown]
  - Inflammatory bowel disease [Unknown]
  - Blood cholesterol increased [Unknown]
  - Blood triglycerides increased [Unknown]
  - Depression [Unknown]
  - Dry skin [Unknown]
  - Crohn^s disease [Unknown]

NARRATIVE: CASE EVENT DATE: 20010307
